FAERS Safety Report 13657344 (Version 1)
Quarter: 2017Q2

REPORT INFORMATION
  Report Type: Spontaneous
  Country: US (occurrence: US)
  Receive Date: 20170615
  Receipt Date: 20170615
  Transmission Date: 20170830
  Serious: Yes (Death)
  Sender: FDA-Public Use
  Company Number: US-PFIZER INC-2017256771

PATIENT
  Age: 76 Year
  Sex: Female
  Weight: 56.7 kg

DRUGS (7)
  1. IBRANCE [Concomitant]
     Active Substance: PALBOCICLIB
  2. ADVAIR HFA [Concomitant]
     Active Substance: FLUTICASONE PROPIONATE\SALMETEROL XINAFOATE
  3. PLAVIX [Concomitant]
     Active Substance: CLOPIDOGREL BISULFATE
  4. TENORMIN [Concomitant]
     Active Substance: ATENOLOL
  5. AROMASIN [Suspect]
     Active Substance: EXEMESTANE
     Indication: BREAST CANCER METASTATIC
     Dosage: 25 MG, DAILY
     Dates: start: 20160818
  6. NORVASC [Concomitant]
     Active Substance: AMLODIPINE BESYLATE
  7. ALBUTEROL /00139501/ [Concomitant]
     Active Substance: ALBUTEROL

REACTIONS (1)
  - Neoplasm progression [Fatal]
